FAERS Safety Report 6081580-X (Version None)
Quarter: 2009Q1

REPORT INFORMATION
  Report Type: 
  Country: None (occurrence: None)
  Receive Date: 20090218
  Receipt Date: 20090213
  Transmission Date: 20090719
  Serious: Yes (Death, Other)
  Sender: FDA-Public Use
  Company Number: PHHY2009JP02429

PATIENT
  Age: 3 Year
  Sex: Male

DRUGS (14)
  1. SANDIMMUNE [Suspect]
     Indication: LYMPHOHISTIOCYTOSIS
  2. FK 506 [Concomitant]
     Indication: LYMPHOHISTIOCYTOSIS
  3. FK 506 [Concomitant]
     Indication: CORD BLOOD TRANSPLANT THERAPY
  4. DEXAMETHASONE [Suspect]
     Indication: LYMPHOHISTIOCYTOSIS
  5. ETOPOSIDE [Suspect]
     Indication: LYMPHOHISTIOCYTOSIS
  6. ETOPOSIDE [Suspect]
     Indication: BONE MARROW TRANSPLANT
  7. BUSULFAN [Suspect]
     Indication: BONE MARROW TRANSPLANT
  8. BUSULFAN [Suspect]
     Indication: CORD BLOOD TRANSPLANT THERAPY
  9. CYCLOPHOSPHAMIDE [Suspect]
     Indication: BONE MARROW TRANSPLANT
  10. IDAMYCIN [Suspect]
     Indication: BONE MARROW TRANSPLANT
  11. FLUDARA [Suspect]
     Indication: CORD BLOOD TRANSPLANT THERAPY
  12. ALKERAN [Suspect]
     Indication: CORD BLOOD TRANSPLANT THERAPY
  13. PHENYLALANINE [Suspect]
     Indication: CORD BLOOD TRANSPLANT THERAPY
  14. CALCINEURIN INHIBITOR (UNSPECIFIED) [Suspect]
     Indication: BONE MARROW TRANSPLANT

REACTIONS (6)
  - CYSTITIS HAEMORRHAGIC [None]
  - ENGRAFTMENT SYNDROME [None]
  - INTERSTITIAL LUNG DISEASE [None]
  - MECHANICAL VENTILATION [None]
  - RESPIRATORY DISORDER [None]
  - RESPIRATORY FAILURE [None]
